FAERS Safety Report 8671787 (Version 4)
Quarter: 2013Q1

REPORT INFORMATION
  Report Type: Spontaneous
  Country: PT (occurrence: PT)
  Receive Date: 20120718
  Receipt Date: 20130327
  Transmission Date: 20140127
  Serious: Yes (Hospitalization, Disabling)
  Sender: FDA-Public Use
  Company Number: PT-ABBOTT-12P-130-0955341-00

PATIENT
  Sex: Female
  Weight: 43 kg

DRUGS (8)
  1. CATALIP [Suspect]
     Indication: HYPERLIPIDAEMIA
     Dosage: HALF CAPSULE
     Route: 048
     Dates: start: 201109, end: 201201
  2. CATALIP [Interacting]
     Dosage: 200 MG 1 X DAY
     Route: 048
     Dates: start: 201201, end: 20120604
  3. RESICAL [Interacting]
     Indication: RENAL FAILURE CHRONIC
     Route: 048
     Dates: start: 20101130
  4. SODIUM BICARBONATE [Interacting]
     Indication: RENAL FAILURE CHRONIC
     Route: 048
     Dates: start: 20101130
  5. EUTIROX [Interacting]
     Indication: HYPOTHYROIDISM
     Route: 048
     Dates: start: 2006
  6. FERRIC HYDROXIDE [Interacting]
     Indication: RENAL FAILURE CHRONIC
     Route: 048
     Dates: start: 20101130
  7. CALCIUM CARBONATE [Interacting]
     Indication: RENAL FAILURE CHRONIC
     Route: 048
     Dates: start: 20101130
  8. CALCITRIOL [Concomitant]
     Indication: RENAL FAILURE CHRONIC
     Dosage: 0.25 MCG 3 X WEEK
     Route: 048
     Dates: start: 20111130

REACTIONS (12)
  - Drug interaction [Not Recovered/Not Resolved]
  - Hepatic function abnormal [Recovering/Resolving]
  - Hypothyroidism [Recovered/Resolved]
  - Renal failure chronic [Not Recovered/Not Resolved]
  - Rhabdomyolysis [Recovered/Resolved]
  - Gastroenteritis [Unknown]
  - Glomerular filtration rate decreased [Recovered/Resolved]
  - Hepatitis [Recovered/Resolved]
  - Aspartate aminotransferase increased [Recovered/Resolved]
  - Alanine aminotransferase increased [Recovered/Resolved]
  - Transaminases increased [Recovering/Resolving]
  - Haemodialysis [None]
